FAERS Safety Report 8985134 (Version 2)
Quarter: 2013Q1

REPORT INFORMATION
  Report Type: Report from Study
  Country: JP (occurrence: JP)
  Receive Date: 20121226
  Receipt Date: 20130102
  Transmission Date: 20140127
  Serious: Yes (Hospitalization)
  Sender: FDA-Public Use
  Company Number: JP-PFIZER INC-2012324852

PATIENT
  Age: 69 Year
  Sex: Female
  Weight: 61.7 kg

DRUGS (8)
  1. SEIBULE [Suspect]
     Indication: TYPE 2 DIABETES MELLITUS
     Dosage: 50 MG, 3X/DAY
     Route: 048
     Dates: start: 20090206
  2. PAXIL [Suspect]
     Dosage: 10 MG, 1X/DAY AFTER SUPPER
     Route: 048
     Dates: start: 2001
  3. LIMAS [Suspect]
     Indication: BIPOLAR DISORDER
     Dosage: 1 DF, 2X/DAY
     Route: 048
     Dates: start: 2001
  4. TEGRETOL [Suspect]
     Indication: BIPOLAR DISORDER
     Dosage: 300 MG, 2X/DAY
     Route: 048
     Dates: start: 2001
  5. ABILIFY [Suspect]
     Indication: BIPOLAR DISORDER
     Dosage: 3 MG, 1X/DAY
     Route: 048
     Dates: start: 2001
  6. DRUG A [Suspect]
     Dosage: 20MG DAILY
     Route: 048
     Dates: start: 20110223, end: 20110317
  7. RHYTHMY [Concomitant]
     Dosage: UNK
  8. LIVALO [Concomitant]
     Dosage: UNK
     Dates: start: 20050224

REACTIONS (1)
  - Gastroenteritis [Recovered/Resolved]
